FAERS Safety Report 24641791 (Version 1)
Quarter: 2024Q4

REPORT INFORMATION
  Report Type: Report from Study
  Country: CA (occurrence: CA)
  Receive Date: 20241120
  Receipt Date: 20241120
  Transmission Date: 20250114
  Serious: Yes (Death, Other)
  Sender: Alvotech
  Company Number: CA-JAMP PHARMA CORPORATION-2023-JAM-CA-01354

PATIENT
  Age: 72 Year
  Sex: Female

DRUGS (1)
  1. SIMLANDI [Suspect]
     Active Substance: ADALIMUMAB-RYVK
     Indication: Ankylosing spondylitis
     Dosage: 40 MILLIGRAM, EVERY 2 WEEK
     Route: 058
     Dates: start: 20230719

REACTIONS (4)
  - Death [Fatal]
  - Seasonal allergy [Unknown]
  - Injection site pruritus [Unknown]
  - Cough [Unknown]
